FAERS Safety Report 9238526 (Version 1)
Quarter: 2013Q2

REPORT INFORMATION
  Report Type: Spontaneous
  Country: US (occurrence: US)
  Receive Date: 20130418
  Receipt Date: 20130418
  Transmission Date: 20140414
  Serious: Yes (Other)
  Sender: FDA-Public Use
  Company Number: US-PFIZER INC-2013121767

PATIENT
  Age: 42 Year
  Sex: Male
  Weight: 86.17 kg

DRUGS (1)
  1. PHENYTOIN [Suspect]
     Indication: CONVULSION
     Dosage: UNK
     Route: 048
     Dates: start: 2011, end: 201204

REACTIONS (2)
  - Road traffic accident [Unknown]
  - Drug ineffective [Unknown]
